FAERS Safety Report 21173642 (Version 1)
Quarter: 2022Q3

REPORT INFORMATION
  Report Type: Spontaneous
  Country: US (occurrence: US)
  Receive Date: 20220804
  Receipt Date: 20220804
  Transmission Date: 20221026
  Serious: No
  Sender: FDA-Public Use
  Company Number: US-PERRIGO-21US010062

PATIENT
  Sex: Female
  Weight: 63.039 kg

DRUGS (5)
  1. LORATADINE [Suspect]
     Active Substance: LORATADINE
     Indication: Hypersensitivity
     Dosage: 10 MG, SINGLE
     Route: 048
     Dates: start: 20210720, end: 20210720
  2. LORATADINE [Suspect]
     Active Substance: LORATADINE
     Dosage: 10 MG, QD
     Route: 048
     Dates: end: 20210719
  3. TRAMADOL [Concomitant]
     Active Substance: TRAMADOL
     Indication: Knee arthroplasty
     Dosage: UNKNOWN, UNKNOWN
     Route: 065
  4. TYLENOL                            /00020001/ [Concomitant]
     Indication: Knee arthroplasty
     Dosage: UNKNOWN, UNKNOWN
     Route: 065
  5. OMEPRAZOLE [Concomitant]
     Active Substance: OMEPRAZOLE
     Indication: Gastrooesophageal reflux disease
     Dosage: UNKNOWN, UNKNOWN
     Route: 065
     Dates: start: 202107

REACTIONS (3)
  - Sedation [Recovered/Resolved]
  - Fatigue [Recovered/Resolved]
  - Somnolence [Recovered/Resolved]

NARRATIVE: CASE EVENT DATE: 20210101
